FAERS Safety Report 9912405 (Version 1)
Quarter: 2014Q1

REPORT INFORMATION
  Report Type: Report from Study
  Country: US (occurrence: US)
  Receive Date: 20140220
  Receipt Date: 20140220
  Transmission Date: 20141002
  Serious: Yes (Other)
  Sender: FDA-Public Use
  Company Number: US-ROCHE-1258918

PATIENT
  Age: 59 Year
  Sex: Female

DRUGS (4)
  1. LUCENTIS [Suspect]
     Indication: DIABETIC RETINAL OEDEMA
     Dosage: OU
     Route: 065
     Dates: start: 20130424
  2. AVASTIN [Suspect]
     Indication: OFF LABEL USE
     Dosage: 29-JAN-2013: OU / 12-MAR-2013: OD
     Route: 065
     Dates: start: 20130129, end: 20130312
  3. AVASTIN [Suspect]
     Indication: DIABETIC RETINAL OEDEMA
  4. METFORMIN [Concomitant]
     Route: 065

REACTIONS (2)
  - Diabetic retinal oedema [Unknown]
  - Vitreous floaters [Unknown]
